FAERS Safety Report 4273994-5 (Version None)
Quarter: 2004Q1

REPORT INFORMATION
  Report Type: 
  Country: None (occurrence: None)
  Receive Date: 20040115
  Receipt Date: 20040106
  Transmission Date: 20041129
  Serious: Yes (Death, Other)
  Sender: FDA-Public Use
  Company Number: 2003125130

PATIENT
  Age: 30 Year
  Sex: Female

DRUGS (1)
  1. VFEND [Suspect]
     Indication: BRONCHOPULMONARY ASPERGILLOSIS
     Dosage: 200 MG, INTRAVENOUS
     Route: 042
     Dates: start: 20031112, end: 20031126

REACTIONS (1)
  - HAEMATURIA [None]
